FAERS Safety Report 9733510 (Version 2)
Quarter: 2013Q4

REPORT INFORMATION
  Report Type: Not Available
  Country: DK (occurrence: DK)
  Receive Date: 20131205
  Receipt Date: 20131205
  Transmission Date: 20140711
  Serious: Yes (Hospitalization)
  Sender: FDA-Public Use
  Company Number: DK-BEH-2013037126

PATIENT
  Age: 42 Year
  Sex: Female
  Weight: 97 kg

DRUGS (1)
  1. PRIVIGEN [Suspect]
     Indication: MULTIFOCAL MOTOR NEUROPATHY
     Dosage: STRENGH: 100 MG/ML DOSIS: DAY 1; 20 G + 10 G + 5 G, DAY 2; 20 G + 20 G AND DAY 3; 20 G + 20 G.
     Dates: start: 20130707, end: 20130709

REACTIONS (5)
  - Headache [Recovering/Resolving]
  - Vomiting [Recovering/Resolving]
  - Dermatitis bullous [Recovering/Resolving]
  - Molluscum contagiosum [Recovering/Resolving]
  - Nausea [Unknown]
